FAERS Safety Report 23416688 (Version 7)
Quarter: 2024Q3

REPORT INFORMATION
  Report Type: Report from Study
  Country: CA (occurrence: CA)
  Receive Date: 20240118
  Receipt Date: 20240724
  Transmission Date: 20241017
  Serious: Yes (Other)
  Sender: JOHNSON AND JOHNSON
  Company Number: CA-JNJFOC-20230338772

PATIENT
  Age: 58 Year
  Sex: Female
  Weight: 77 kg

DRUGS (22)
  1. REMICADE [Suspect]
     Active Substance: INFLIXIMAB
     Indication: Crohn^s disease
     Dosage: THE PATIENT ADMINISTERED 29HT INFUSION OF 385 MG ON 22-MAR-2023.?EXPIRY DATE: 31-MAR-2024?EXPIRATION
     Route: 041
     Dates: start: 20201202
  2. REMICADE [Suspect]
     Active Substance: INFLIXIMAB
     Indication: Uveitis
     Dosage: PT RECEIVED 390MG INSTEAD OF 400MG?EXPIRATION DATE: 28-FEB-2026
     Route: 041
  3. REMICADE [Suspect]
     Active Substance: INFLIXIMAB
     Dosage: EXPIRY DATE: 01-APR-2026
     Route: 041
     Dates: start: 20201202
  4. REMICADE [Suspect]
     Active Substance: INFLIXIMAB
     Dosage: 39 TH INFUSION
     Route: 041
     Dates: start: 20240111
  5. REMICADE [Suspect]
     Active Substance: INFLIXIMAB
     Route: 041
     Dates: start: 20201202
  6. REMICADE [Suspect]
     Active Substance: INFLIXIMAB
     Route: 041
     Dates: start: 20201202
  7. FLEXERIL [Suspect]
     Active Substance: CYCLOBENZAPRINE HYDROCHLORIDE
     Indication: Back pain
     Dates: start: 202312
  8. FLEXERIL [Suspect]
     Active Substance: CYCLOBENZAPRINE HYDROCHLORIDE
     Indication: Hypokinesia
  9. PANTOPRAZOLE SODIUM [Concomitant]
     Active Substance: PANTOPRAZOLE SODIUM
  10. HYDROCHLOROTHIAZIDE [Concomitant]
     Active Substance: HYDROCHLOROTHIAZIDE
  11. VITAMIN B12 [Concomitant]
     Active Substance: CYANOCOBALAMIN
  12. SYNTHROID [Concomitant]
     Active Substance: LEVOTHYROXINE SODIUM
  13. BETAHISTINE [Concomitant]
     Active Substance: BETAHISTINE
  14. ACETAMINOPHEN [Concomitant]
     Active Substance: ACETAMINOPHEN
  15. NASONEX [Concomitant]
     Active Substance: MOMETASONE FUROATE
  16. CHOLECALCIFEROL [Concomitant]
     Active Substance: CHOLECALCIFEROL
  17. BISACODYL [Concomitant]
     Active Substance: BISACODYL
  18. PERINDOPRIL [Concomitant]
     Active Substance: PERINDOPRIL
  19. ROSUVASTATIN [Concomitant]
     Active Substance: ROSUVASTATIN
  20. ESTRADIOL [Concomitant]
     Active Substance: ESTRADIOL
  21. ERGOCALCIFEROL [Concomitant]
     Active Substance: ERGOCALCIFEROL
  22. SYNTHROID [Concomitant]
     Active Substance: LEVOTHYROXINE SODIUM

REACTIONS (27)
  - Osteoarthritis [Unknown]
  - Hypoaesthesia [Recovered/Resolved]
  - COVID-19 [Recovered/Resolved]
  - Constipation [Not Recovered/Not Resolved]
  - Nasopharyngitis [Not Recovered/Not Resolved]
  - Fatigue [Not Recovered/Not Resolved]
  - Pain [Recovering/Resolving]
  - Infusion related reaction [Recovering/Resolving]
  - Tension [Unknown]
  - Stress [Unknown]
  - Thyroid disorder [Unknown]
  - Faeces soft [Unknown]
  - Faecal calprotectin increased [Unknown]
  - Bone pain [Unknown]
  - Arthropathy [Unknown]
  - Somnolence [Unknown]
  - Insomnia [Unknown]
  - Dizziness [Unknown]
  - Abdominal pain [Not Recovered/Not Resolved]
  - Diarrhoea [Unknown]
  - Arthralgia [Not Recovered/Not Resolved]
  - Headache [Recovering/Resolving]
  - Weight increased [Unknown]
  - Abdominal distension [Unknown]
  - Myalgia [Not Recovered/Not Resolved]
  - Anxiety [Not Recovered/Not Resolved]
  - Nipple exudate bloody [Not Recovered/Not Resolved]

NARRATIVE: CASE EVENT DATE: 20230101
